FAERS Safety Report 6723326-5 (Version None)
Quarter: 2010Q2

REPORT INFORMATION
  Report Type: 
  Country: None (occurrence: None)
  Receive Date: 20100513
  Receipt Date: 20100513
  Transmission Date: 20101027
  Serious: Yes (Other)
  Sender: FDA-Public Use
  Company Number: None

PATIENT
  Age: 2 Year
  Sex: Male
  Weight: 17.6903 kg

DRUGS (4)
  1. CHILDREN'S MOTRIN [Suspect]
     Indication: EAR INFECTION
     Dosage: 7.5 ML 2 TO 3 X DAILY PO
     Route: 048
     Dates: start: 20100203, end: 20100219
  2. CHILDREN'S MOTRIN [Suspect]
     Indication: PAIN
     Dosage: 7.5 ML 2 TO 3 X DAILY PO
     Route: 048
     Dates: start: 20100203, end: 20100219
  3. CHILDREN'S TYLENOL [Suspect]
     Indication: EAR INFECTION
     Dosage: 7.5 ML 2 TO 3 X DAILY PO
     Route: 048
     Dates: start: 20100203, end: 20100219
  4. CHILDREN'S TYLENOL [Suspect]
     Indication: PAIN
     Dosage: 7.5 ML 2 TO 3 X DAILY PO
     Route: 048
     Dates: start: 20100203, end: 20100219

REACTIONS (6)
  - EAR PAIN [None]
  - FEAR [None]
  - PRODUCT QUALITY ISSUE [None]
  - PRURITUS [None]
  - PSYCHOMOTOR HYPERACTIVITY [None]
  - TIC [None]
